FAERS Safety Report 7703743-7 (Version None)
Quarter: 2011Q3

REPORT INFORMATION
  Report Type: 
  Country: None (occurrence: None)
  Receive Date: 20110823
  Receipt Date: 20110818
  Transmission Date: 20111222
  Serious: Yes (Other)
  Sender: FDA-Public Use
  Company Number: AU-AMGEN-AUSCT2011035938

PATIENT
  Age: 81 Year
  Sex: Male

DRUGS (7)
  1. SYMBICORT [Concomitant]
     Dosage: UNK UNK, BID
  2. DENOSUMAB [Suspect]
     Indication: PROSTATE CANCER
     Dosage: 60 MG, UNK
     Dates: start: 20110111
  3. IRBESARTAN [Concomitant]
     Dosage: 150 MG, QD
  4. CALCIUM CARBONATE [Concomitant]
     Dosage: UNK UNK, QD
  5. TRAMADOL HCL [Concomitant]
  6. CHOLECALCIFEROL [Concomitant]
  7. ALLOPURINOL [Concomitant]
     Dosage: 300 MG, QD

REACTIONS (1)
  - OSTEONECROSIS OF JAW [None]
